FAERS Safety Report 5507249-5 (Version None)
Quarter: 2007Q4

REPORT INFORMATION
  Report Type: 
  Country: None (occurrence: None)
  Receive Date: 20071105
  Receipt Date: 20071105
  Transmission Date: 20080405
  Serious: Yes (Life-Threatening, Hospitalization)
  Sender: FDA-Public Use
  Company Number: None

PATIENT
  Age: 17 Month
  Sex: Male
  Weight: 9.9 kg

DRUGS (2)
  1. KETAMINE HCL [Suspect]
     Indication: SEDATION
     Dosage: 40MG ONCE IM
     Route: 030
     Dates: start: 20070905
  2. KETAMINE HCL [Suspect]
     Indication: SKIN LACERATION
     Dosage: 40MG ONCE IM
     Route: 030
     Dates: start: 20070905

REACTIONS (5)
  - CHEST DISCOMFORT [None]
  - LARYNGOSPASM [None]
  - RESPIRATORY FAILURE [None]
  - SOMNOLENCE [None]
  - VOMITING [None]
